FAERS Safety Report 23589517 (Version 1)
Quarter: 2024Q1

REPORT INFORMATION
  Report Type: Spontaneous
  Country: US (occurrence: US)
  Receive Date: 20240304
  Receipt Date: 20240304
  Transmission Date: 20240410
  Serious: No
  Sender: FDA-Public Use
  Company Number: US-CSLP-13513128601-V11589590-49

PATIENT
  Age: 34 Year
  Sex: Male

DRUGS (1)
  1. ANTICOAGULANT SODIUM CITRATE [Suspect]
     Active Substance: SODIUM CITRATE
     Indication: Anticoagulant therapy
     Route: 050
     Dates: start: 20240209, end: 20240209

REACTIONS (22)
  - Abdominal pain [Recovered/Resolved]
  - Restlessness [Recovered/Resolved]
  - Hypoaesthesia oral [Recovered/Resolved]
  - Dysgeusia [Recovered/Resolved]
  - Skin discolouration [Recovered/Resolved]
  - Tetany [Recovered/Resolved]
  - Dizziness [Recovered/Resolved]
  - Vessel puncture site haematoma [Recovered/Resolved]
  - Movement disorder [Recovered/Resolved]
  - Muscle spasms [Recovered/Resolved]
  - Anxiety [Recovered/Resolved]
  - Thirst [Recovered/Resolved]
  - Peripheral coldness [Recovered/Resolved]
  - Dyskinesia [Recovered/Resolved]
  - Pallor [Recovered/Resolved]
  - Asthenia [Recovered/Resolved]
  - Hyperhidrosis [Recovered/Resolved]
  - Tremor [Recovered/Resolved]
  - Paraesthesia [Recovered/Resolved]
  - Muscle twitching [Recovered/Resolved]
  - Dysarthria [Recovered/Resolved]
  - Induration [Recovered/Resolved]

NARRATIVE: CASE EVENT DATE: 20240209
